FAERS Safety Report 8446931-7 (Version None)
Quarter: 2012Q2

REPORT INFORMATION
  Report Type: 
  Country: None (occurrence: None)
  Receive Date: 20120613
  Receipt Date: 20120613
  Transmission Date: 20120825
  Serious: Yes (Life-Threatening)
  Sender: FDA-Public Use
  Company Number: None

PATIENT
  Age: 65 Year
  Sex: Female
  Weight: 34.0198 kg

DRUGS (2)
  1. LYRICA [Suspect]
     Indication: NEURALGIA
     Dosage: 03
  2. LYRICA [Suspect]
     Indication: PAIN IN JAW
     Dosage: 03

REACTIONS (2)
  - DYSARTHRIA [None]
  - DISEASE COMPLICATION [None]
